FAERS Safety Report 6113649-5 (Version None)
Quarter: 2009Q1

REPORT INFORMATION
  Report Type: 
  Country: None (occurrence: None)
  Receive Date: 20090312
  Receipt Date: 20090304
  Transmission Date: 20090719
  Serious: Yes (Hospitalization)
  Sender: FDA-Public Use
  Company Number: IN-BAXTER-2009BH003818

PATIENT

DRUGS (2)
  1. LACTATED RINGER'S [Suspect]
     Indication: EYE OPERATION
     Route: 031
     Dates: start: 20090303, end: 20090303
  2. LACTATED RINGER'S [Suspect]
     Indication: OFF LABEL USE
     Route: 031
     Dates: start: 20090303, end: 20090303

REACTIONS (1)
  - EYE INFLAMMATION [None]
